FAERS Safety Report 4355792-7 (Version None)
Quarter: 2004Q2

REPORT INFORMATION
  Report Type: 
  Country: None (occurrence: None)
  Receive Date: 20040511
  Receipt Date: 20040504
  Transmission Date: 20050107
  Serious: Yes (Other)
  Sender: FDA-Public Use
  Company Number: PHRM2004FR01746

PATIENT
  Age: 72 Year
  Sex: Female

DRUGS (1)
  1. TRILEPTAL [Suspect]
     Route: 048

REACTIONS (4)
  - CYTOLYTIC HEPATITIS [None]
  - HEPATIC ENZYME INCREASED [None]
  - HYPONATRAEMIA [None]
  - NEUTROPENIA [None]
